FAERS Safety Report 7733852-8 (Version None)
Quarter: 2011Q3

REPORT INFORMATION
  Report Type: 
  Country: None (occurrence: None)
  Receive Date: 20110906
  Receipt Date: 20110906
  Transmission Date: 20111222
  Serious: Yes (Other)
  Sender: FDA-Public Use
  Company Number: None

PATIENT
  Sex: Female

DRUGS (1)
  1. HYDROCODONE BITARTRATE AND ACETAMINOPHEN [Suspect]
     Indication: INTERVERTEBRAL DISC DEGENERATION
     Dosage: LORTAB 10 3 TIMES DAILY ORAL
     Route: 048
     Dates: start: 20110718, end: 20110720

REACTIONS (4)
  - DRUG INEFFECTIVE [None]
  - VOMITING [None]
  - PRODUCT SUBSTITUTION ISSUE [None]
  - HEADACHE [None]
